FAERS Safety Report 9893132 (Version 1)
Quarter: 2014Q1

REPORT INFORMATION
  Report Type: Report from Study
  Country: US (occurrence: US)
  Receive Date: 20140213
  Receipt Date: 20140213
  Transmission Date: 20141002
  Serious: Yes (Death, Other)
  Sender: FDA-Public Use
  Company Number: US-ROCHE-1316937

PATIENT
  Age: 49 Year
  Sex: Female
  Weight: 57.3 kg

DRUGS (5)
  1. AVASTIN [Suspect]
     Indication: CERVIX CARCINOMA
     Route: 041
     Dates: start: 20110908
  2. DEXAMETHASONE [Concomitant]
     Dosage: AS DIRECTED
     Route: 042
  3. ASA [Concomitant]
     Dosage: ADULT ONE DAILY
     Route: 065
  4. REGLAN [Concomitant]
     Indication: NAUSEA
     Dosage: AC AND QHS
     Route: 065
  5. MEGACE [Concomitant]

REACTIONS (22)
  - Death [Fatal]
  - Renal failure acute [Recovered/Resolved]
  - Disease progression [Unknown]
  - Nausea [Unknown]
  - Obstructive uropathy [Recovered/Resolved]
  - Abdominal discomfort [Recovered/Resolved]
  - Weight decreased [Recovered/Resolved]
  - Fatigue [Recovered/Resolved]
  - Decreased appetite [Recovered/Resolved]
  - Tinnitus [Recovered/Resolved]
  - Vomiting [Recovered/Resolved]
  - Constipation [Recovered/Resolved]
  - Abdominal distension [Unknown]
  - Pelvic discomfort [Unknown]
  - Nocturia [Unknown]
  - Paraesthesia [Unknown]
  - Insomnia [Unknown]
  - Back pain [Unknown]
  - Abscess limb [Recovering/Resolving]
  - Gastrooesophageal reflux disease [Unknown]
  - Anaemia [Unknown]
  - Off label use [Unknown]
